FAERS Safety Report 6537239-5 (Version None)
Quarter: 2010Q1

REPORT INFORMATION
  Report Type: 
  Country: None (occurrence: None)
  Receive Date: 20100114
  Receipt Date: 20100105
  Transmission Date: 20100710
  Serious: Yes (Hospitalization, Other)
  Sender: FDA-Public Use
  Company Number: US-ABBOTT-10P-163-0617753-00

PATIENT
  Sex: Male
  Weight: 61.29 kg

DRUGS (7)
  1. HUMIRA [Suspect]
     Indication: CROHN'S DISEASE
     Route: 050
     Dates: start: 20080901, end: 20090401
  2. HUMIRA [Suspect]
     Route: 058
     Dates: start: 20090401
  3. METHOTREXATE [Concomitant]
     Indication: CROHN'S DISEASE
  4. VITAMIN B-12 [Concomitant]
     Indication: DRUG USE FOR UNKNOWN INDICATION
     Route: 050
  5. FOLIC ACID [Concomitant]
     Indication: DRUG USE FOR UNKNOWN INDICATION
  6. PREVACID [Concomitant]
     Indication: DRUG USE FOR UNKNOWN INDICATION
  7. IRON INFUSIONS [Concomitant]
     Indication: IRON DEFICIENCY ANAEMIA
     Route: 042

REACTIONS (12)
  - CHEST DISCOMFORT [None]
  - DIARRHOEA [None]
  - GASTROINTESTINAL FISTULA [None]
  - HYPOVENTILATION [None]
  - INTESTINAL STENOSIS [None]
  - JOINT STIFFNESS [None]
  - MALNUTRITION [None]
  - MUSCLE ATROPHY [None]
  - OEDEMA PERIPHERAL [None]
  - PYREXIA [None]
  - SYSTEMIC LUPUS ERYTHEMATOSUS [None]
  - WEIGHT DECREASED [None]
